FAERS Safety Report 18746829 (Version 2)
Quarter: 2021Q1

REPORT INFORMATION
  Report Type: Spontaneous
  Country: US (occurrence: US)
  Receive Date: 20210115
  Receipt Date: 20210212
  Transmission Date: 20210419
  Serious: No
  Sender: FDA-Public Use
  Company Number: US-KYOWAKIRIN-2021BKK000332

PATIENT

DRUGS (2)
  1. CRYSVITA [Suspect]
     Active Substance: BUROSUMAB-TWZA
     Dosage: 30 MG, 1X/2 WEEKS
     Route: 058
     Dates: start: 2021
  2. CRYSVITA [Suspect]
     Active Substance: BUROSUMAB-TWZA
     Indication: HEREDITARY HYPOPHOSPHATAEMIC RICKETS
     Dosage: 20 MG, 1X/2 WEEKS
     Route: 058
     Dates: start: 20200611

REACTIONS (8)
  - Tooth loss [Unknown]
  - Attention deficit hyperactivity disorder [Unknown]
  - Pain in extremity [Recovered/Resolved]
  - Ligament sprain [Unknown]
  - Adipomastia [Unknown]
  - Obesity [Unknown]
  - Hyperphagia [Unknown]
  - Foot deformity [Unknown]
